FAERS Safety Report 13612864 (Version 1)
Quarter: 2017Q2

REPORT INFORMATION
  Report Type: Spontaneous
  Country: JP (occurrence: JP)
  Receive Date: 20170605
  Receipt Date: 20170605
  Transmission Date: 20170830
  Serious: Yes (Hospitalization, Other)
  Sender: FDA-Public Use
  Company Number: JP-ELI_LILLY_AND_COMPANY-JP201704007190

PATIENT
  Age: 62 Year
  Sex: Male
  Weight: 48 kg

DRUGS (8)
  1. PACLITAXEL. [Concomitant]
     Active Substance: PACLITAXEL
     Indication: OESOPHAGEAL ADENOCARCINOMA
     Dosage: 122 MG, OTHER
     Route: 042
     Dates: start: 20170302
  2. DEXART [Concomitant]
     Active Substance: DEXAMETHASONE SODIUM PHOSPHATE
     Indication: PROPHYLAXIS
     Dosage: 13.2 MG, DAILY
     Route: 065
     Dates: start: 20161215, end: 20170406
  3. LASIX [Concomitant]
     Active Substance: FUROSEMIDE
     Indication: OEDEMA
     Dosage: 40 MG, UNK
     Route: 065
     Dates: start: 20170330, end: 20170406
  4. PACLITAXEL. [Concomitant]
     Active Substance: PACLITAXEL
     Dosage: 90 MG, OTHER
     Route: 042
     Dates: end: 20170406
  5. RESTAMIN                           /00000402/ [Concomitant]
     Active Substance: DIPHENHYDRAMINE HYDROCHLORIDE
     Indication: PROPHYLAXIS
     Dosage: 50 MG, UNK
     Route: 065
     Dates: start: 20170302, end: 20170406
  6. PYDOXAL [Concomitant]
     Active Substance: PYRIDOXAL
     Indication: HYPOAESTHESIA
     Dosage: 60 MG, UNK
     Route: 065
     Dates: start: 20161208, end: 20170302
  7. CYRAMZA [Suspect]
     Active Substance: RAMUCIRUMAB
     Indication: OESOPHAGEAL ADENOCARCINOMA
     Dosage: 445 MG, OTHER
     Route: 042
     Dates: start: 20170302, end: 20170323
  8. GASTER [Concomitant]
     Active Substance: FAMOTIDINE
     Indication: PROPHYLAXIS
     Dosage: 20 MG, UNK
     Route: 065
     Dates: start: 20170302, end: 20170406

REACTIONS (4)
  - Peritonitis [Recovered/Resolved]
  - Neutrophil count decreased [Recovered/Resolved]
  - Gastric perforation [Recovered/Resolved]
  - Haemoglobin decreased [Recovered/Resolved]

NARRATIVE: CASE EVENT DATE: 20170316
